FAERS Safety Report 18394057 (Version 2)
Quarter: 2021Q1

REPORT INFORMATION
  Report Type: Report from Study
  Country: US (occurrence: US)
  Receive Date: 20201016
  Receipt Date: 20210131
  Transmission Date: 20210419
  Serious: Yes (Hospitalization, Other)
  Sender: FDA-Public Use
  Company Number: US-BIOGEN-2020BI00933350

PATIENT
  Sex: Female

DRUGS (1)
  1. TECFIDERA [Suspect]
     Active Substance: DIMETHYL FUMARATE
     Indication: MULTIPLE SCLEROSIS
     Route: 065
     Dates: start: 20180515, end: 20201006

REACTIONS (6)
  - Cholecystitis infective [Unknown]
  - Gastrointestinal gangrene [Unknown]
  - Pancreatitis [Unknown]
  - Cholelithiasis [Unknown]
  - Bile duct stenosis [Unknown]
  - Hepatitis [Unknown]
